FAERS Safety Report 9638483 (Version 1)
Quarter: 2013Q4

REPORT INFORMATION
  Report Type: Spontaneous
  Country: US (occurrence: None)
  Receive Date: 20131021
  Receipt Date: 20131021
  Transmission Date: 20140711
  Serious: No
  Sender: FDA-Public Use
  Company Number: None

PATIENT
  Age: 60 Year
  Sex: Male
  Weight: 89.5 kg

DRUGS (2)
  1. MIDAZOLAM [Suspect]
     Route: 042
     Dates: start: 20131011, end: 20131011
  2. FENTANYL [Suspect]
     Route: 042
     Dates: start: 20131011, end: 20131011

REACTIONS (2)
  - Obstructive airways disorder [None]
  - Hypoxia [None]
